FAERS Safety Report 10244988 (Version 1)
Quarter: 2014Q2

REPORT INFORMATION
  Report Type: Spontaneous
  Country: US (occurrence: US)
  Receive Date: 20140618
  Receipt Date: 20140618
  Transmission Date: 20141212
  Serious: No
  Sender: FDA-Public Use
  Company Number: US-GALDERMA-US14001908

PATIENT
  Age: 48 Year
  Sex: Female

DRUGS (3)
  1. MIRVASO (BRIMONIDINE) TOPICAL GEL, 0.33% [Suspect]
     Indication: ROSACEA
     Dosage: 0.33%
     Route: 061
     Dates: start: 20140325, end: 20140328
  2. ORACEA (DOXYCYCLINE, USP) CAPSULES 40 MG [Suspect]
     Dosage: 40MG
     Route: 048
     Dates: start: 201404, end: 20140520
  3. CERAVE FACIAL WASH [Concomitant]
     Indication: THERAPEUTIC SKIN CARE TOPICAL
     Route: 061
     Dates: start: 2012

REACTIONS (9)
  - Pruritus [Recovered/Resolved]
  - Skin tightness [Recovered/Resolved]
  - Dry skin [Recovered/Resolved]
  - Eye irritation [Recovered/Resolved]
  - Vasodilatation [Not Recovered/Not Resolved]
  - Flushing [Not Recovered/Not Resolved]
  - Erythema [Not Recovered/Not Resolved]
  - Drug ineffective [Not Recovered/Not Resolved]
  - Off label use [Recovered/Resolved]
